FAERS Safety Report 9227987 (Version 1)
Quarter: 2013Q2

REPORT INFORMATION
  Report Type: Spontaneous
  Country: US (occurrence: US)
  Receive Date: 20130412
  Receipt Date: 20130412
  Transmission Date: 20140414
  Serious: No
  Sender: FDA-Public Use
  Company Number: US-GLAXOSMITHKLINE-A0980976A

PATIENT
  Age: 60 Year
  Sex: Male

DRUGS (2)
  1. VUSION [Suspect]
     Indication: ROSACEA
     Dosage: 1APP THREE TIMES PER DAY
     Route: 061
     Dates: start: 20120608, end: 20120609
  2. NO CONCURRENT MEDICATION [Concomitant]

REACTIONS (2)
  - Application site pruritus [Unknown]
  - Application site erythema [Unknown]
